FAERS Safety Report 18057574 (Version 3)
Quarter: 2020Q4

REPORT INFORMATION
  Report Type: Report from Study
  Country: None (occurrence: US)
  Receive Date: 20200722
  Receipt Date: 20201202
  Transmission Date: 20210113
  Serious: Yes (Other)
  Sender: FDA-Public Use
  Company Number: US-ABBVIE-20K-163-3436795-00

PATIENT
  Sex: Male

DRUGS (1)
  1. HUMIRA [Suspect]
     Active Substance: ADALIMUMAB
     Indication: RHEUMATOID ARTHRITIS
     Route: 058
     Dates: end: 20200625

REACTIONS (12)
  - Meniscus injury [Unknown]
  - Medical device site joint pain [Unknown]
  - Scar [Unknown]
  - Post procedural discomfort [Unknown]
  - Osteoarthritis [Unknown]
  - Joint range of motion decreased [Unknown]
  - Loose body in joint [Unknown]
  - Osteoarthritis [Not Recovered/Not Resolved]
  - Mobility decreased [Unknown]
  - Procedural pain [Unknown]
  - Joint stiffness [Unknown]
  - Gait disturbance [Not Recovered/Not Resolved]
